FAERS Safety Report 20478510 (Version 3)
Quarter: 2022Q1

REPORT INFORMATION
  Report Type: Other
  Country: US (occurrence: None)
  Receive Date: 20220216
  Receipt Date: 20220330
  Transmission Date: 20220423
  Serious: Yes (Hospitalization, Other)
  Sender: FDA-Public Use
  Company Number: US-ROCHE-3019159

PATIENT
  Age: 52 Year
  Sex: Female
  Weight: 59.020 kg

DRUGS (7)
  1. OCREVUS [Suspect]
     Active Substance: OCRELIZUMAB
     Indication: Relapsing-remitting multiple sclerosis
     Dosage: 300 MG ON WEEK 0 AND WEEK 2 THAN 600 MG EVERY 6 MONTHS
     Route: 042
     Dates: start: 20210802
  2. BAMLANIVIMAB [Concomitant]
     Active Substance: BAMLANIVIMAB
  3. ETESEVIMAB [Concomitant]
     Active Substance: ETESEVIMAB
  4. SYNTHROID [Concomitant]
     Active Substance: LEVOTHYROXINE SODIUM
  5. CYMBALTA [Concomitant]
     Active Substance: DULOXETINE HYDROCHLORIDE
  6. NARCAN [Concomitant]
     Active Substance: NALOXONE HYDROCHLORIDE
  7. PRILOSEC [Concomitant]
     Active Substance: OMEPRAZOLE MAGNESIUM

REACTIONS (4)
  - Catatonia [Recovering/Resolving]
  - Memory impairment [Not Recovered/Not Resolved]
  - COVID-19 pneumonia [Recovering/Resolving]
  - Weight decreased [Not Recovered/Not Resolved]

NARRATIVE: CASE EVENT DATE: 20210901
